FAERS Safety Report 5537605-0 (Version None)
Quarter: 2007Q4

REPORT INFORMATION
  Report Type: 
  Country: None (occurrence: None)
  Receive Date: 20071207
  Receipt Date: 20071129
  Transmission Date: 20080405
  Serious: Yes (Death, Other)
  Sender: FDA-Public Use
  Company Number: JP-WYE-H01515607

PATIENT
  Sex: Male
  Weight: 61 kg

DRUGS (6)
  1. MYLOTARG [Suspect]
     Indication: ACUTE MYELOID LEUKAEMIA
     Route: 041
     Dates: start: 20070324, end: 20070324
  2. MYLOTARG [Suspect]
     Route: 041
     Dates: start: 20070628, end: 20070628
  3. NOVANTRONE [Suspect]
     Indication: ACUTE MYELOID LEUKAEMIA
     Dosage: NOT PROVIDED
     Route: 042
     Dates: start: 20070623, end: 20070625
  4. MAXIPIME [Concomitant]
     Route: 041
     Dates: start: 20070701, end: 20070706
  5. CRAVIT [Concomitant]
     Indication: PROPHYLAXIS
     Route: 048
     Dates: start: 20070624, end: 20070706
  6. ITRIZOLE [Concomitant]
     Indication: PROPHYLAXIS
     Route: 048
     Dates: start: 20070317

REACTIONS (3)
  - BRONCHOPULMONARY ASPERGILLOSIS [None]
  - FEBRILE NEUTROPENIA [None]
  - PNEUMOCYSTIS JIROVECI PNEUMONIA [None]
